FAERS Safety Report 5408404-5 (Version None)
Quarter: 2007Q3

REPORT INFORMATION
  Report Type: 
  Country: None (occurrence: None)
  Receive Date: 20070806
  Receipt Date: 20070730
  Transmission Date: 20080115
  Serious: Yes (Hospitalization)
  Sender: FDA-Public Use
  Company Number: 2006SP008991

PATIENT
  Age: 82 Year
  Sex: Male
  Weight: 44 kg

DRUGS (9)
  1. TEMODAL [Suspect]
     Indication: GLIOBLASTOMA MULTIFORME
     Dosage: 220 MG; QD; PO; 280 MG; QD; PO
     Route: 048
     Dates: start: 20061023, end: 20061027
  2. TEMODAL [Suspect]
     Indication: GLIOBLASTOMA MULTIFORME
     Dosage: 220 MG; QD; PO; 280 MG; QD; PO
     Route: 048
     Dates: start: 20061120, end: 20061124
  3. TEMODAL [Suspect]
     Indication: GLIOBLASTOMA MULTIFORME
     Dosage: 220 MG; QD; PO; 280 MG; QD; PO
     Route: 048
     Dates: start: 20070119, end: 20070123
  4. TEMODAL [Suspect]
     Indication: GLIOBLASTOMA MULTIFORME
     Dosage: 220 MG; QD; PO; 280 MG; QD; PO
     Route: 048
     Dates: start: 20070216, end: 20070220
  5. TIAPRIM [Concomitant]
  6. CHLORPROMAZINE HCL [Concomitant]
  7. LENDORMIN [Concomitant]
  8. FERROMIA [Concomitant]
  9. EXCEMIDE [Concomitant]

REACTIONS (2)
  - BACTERIAL INFECTION [None]
  - PSEUDOMONAS INFECTION [None]
